FAERS Safety Report 6968584-7 (Version None)
Quarter: 2010Q3

REPORT INFORMATION
  Report Type: 
  Country: None (occurrence: None)
  Receive Date: 20100907
  Receipt Date: 20100826
  Transmission Date: 20110219
  Serious: No
  Sender: FDA-Public Use
  Company Number: US-JNJFOC-20100900158

PATIENT
  Sex: Female
  Weight: 104.33 kg

DRUGS (11)
  1. FENTANYL CITRATE [Suspect]
     Indication: PAIN
     Route: 062
  2. DURAGESIC-100 [Suspect]
     Indication: PAIN
     Dosage: NDC#50458-0091-05
     Route: 062
  3. NEORAL [Concomitant]
     Indication: IMMUNOSUPPRESSION
     Route: 048
  4. CELLCEPT [Concomitant]
     Indication: IMMUNOSUPPRESSION
     Route: 048
  5. LOPRESSOR [Concomitant]
     Indication: HYPERTENSION
     Route: 048
  6. HYDROCHLOROTHIAZIDE [Concomitant]
     Indication: HYPERTENSION
     Route: 048
  7. NORVASC [Concomitant]
     Indication: HYPERTENSION
     Route: 048
  8. CYMBALTA [Concomitant]
     Indication: NEUROPATHY PERIPHERAL
     Dosage: MORNING
     Route: 048
  9. CYMBALTA [Concomitant]
     Route: 048
  10. OXYCODONE [Concomitant]
     Indication: BREAKTHROUGH PAIN
     Dosage: 10MG/5MG
     Route: 048
  11. PRILOSEC [Concomitant]
     Indication: GASTROOESOPHAGEAL REFLUX DISEASE
     Route: 048

REACTIONS (4)
  - DRUG INEFFECTIVE [None]
  - INSOMNIA [None]
  - TREATMENT NONCOMPLIANCE [None]
  - WRONG TECHNIQUE IN DRUG USAGE PROCESS [None]
